FAERS Safety Report 8191149-9 (Version None)
Quarter: 2012Q1

REPORT INFORMATION
  Report Type: 
  Country: None (occurrence: None)
  Receive Date: 20120307
  Receipt Date: 20120229
  Transmission Date: 20120608
  Serious: Yes (Death)
  Sender: FDA-Public Use
  Company Number: DE-ALLERGAN-1103857US

PATIENT
  Age: 73 Year
  Sex: Male

DRUGS (4)
  1. OZURDEX [Suspect]
     Indication: MACULAR OEDEMA
     Dosage: UNK
     Route: 031
     Dates: start: 20101207, end: 20101207
  2. ENALAPRIL MALEATE [Concomitant]
     Indication: HYPERTENSION
  3. AMIODARON                          /00133101/ [Concomitant]
     Indication: CARDIOVASCULAR DISORDER
  4. ASPIRIN [Concomitant]

REACTIONS (2)
  - OCULAR HYPERTENSION [None]
  - COMPLETED SUICIDE [None]
